FAERS Safety Report 23489671 (Version 1)
Quarter: 2024Q1

REPORT INFORMATION
  Report Type: Spontaneous
  Country: US (occurrence: None)
  Receive Date: 20240206
  Receipt Date: 20240206
  Transmission Date: 20240410
  Serious: No
  Sender: FDA-Public Use
  Company Number: US-ROCHE-3336636

PATIENT
  Age: 25 Year
  Sex: Female

DRUGS (15)
  1. XOLAIR [Suspect]
     Active Substance: OMALIZUMAB
     Indication: Product used for unknown indication
     Dosage: 4 TH INJECTION 6/APR/2023
     Route: 065
  2. ALLEGRA [Concomitant]
     Active Substance: FEXOFENADINE HYDROCHLORIDE
  3. ZYRTEC [Concomitant]
     Active Substance: CETIRIZINE HYDROCHLORIDE
  4. PANTOPRAZOLE [Concomitant]
     Active Substance: PANTOPRAZOLE
  5. ALBUTEROL [Concomitant]
     Active Substance: ALBUTEROL
  6. TRELEGY ELLIPTA [Concomitant]
     Active Substance: FLUTICASONE FUROATE\UMECLIDINIUM BROMIDE\VILANTEROL TRIFENATATE
  7. D-MANNOSE [Concomitant]
  8. CRANBERRY [Concomitant]
     Active Substance: CRANBERRY
  9. ERGOCALCIFEROL [Concomitant]
     Active Substance: ERGOCALCIFEROL
  10. PROBIOTICS NOS [Concomitant]
     Active Substance: PROBIOTICS NOS
  11. OMEPRAZOLE [Concomitant]
     Active Substance: OMEPRAZOLE
  12. COENZYME Q10 [Concomitant]
     Active Substance: DIETARY SUPPLEMENT\UBIDECARENONE
  13. VITAMIN C [Concomitant]
     Active Substance: ASCORBIC ACID
  14. IRON [Concomitant]
     Active Substance: IRON
  15. LUVOX [Concomitant]
     Active Substance: FLUVOXAMINE MALEATE

REACTIONS (4)
  - Blood pressure increased [Unknown]
  - Throat tightness [Unknown]
  - Dyspnoea [Unknown]
  - Chronic spontaneous urticaria [Unknown]
